FAERS Safety Report 4266348-9 (Version None)
Quarter: 2004Q1

REPORT INFORMATION
  Report Type: 
  Country: None (occurrence: None)
  Receive Date: 20040106
  Receipt Date: 20031223
  Transmission Date: 20041129
  Serious: Yes (Hospitalization)
  Sender: FDA-Public Use
  Company Number: TNZFR200300082

PATIENT
  Age: 71 Year
  Sex: Male

DRUGS (3)
  1. INNOHEP [Suspect]
     Indication: ARRHYTHMIA
     Dosage: 8000 IU (8000 IU, 1 IN 1 D), SUBCUTANEOUS
     Route: 058
     Dates: start: 20030730, end: 20031104
  2. INNOHEP [Suspect]
     Indication: ATRIAL FIBRILLATION
     Dosage: 8000 IU (8000 IU, 1 IN 1 D), SUBCUTANEOUS
     Route: 058
     Dates: start: 20030730, end: 20031104
  3. SOTALOL HCL [Concomitant]

REACTIONS (2)
  - ATRIAL FIBRILLATION [None]
  - HYPERKALAEMIA [None]
